FAERS Safety Report 8328734-7 (Version None)
Quarter: 2012Q2

REPORT INFORMATION
  Report Type: 
  Country: None (occurrence: None)
  Receive Date: 20120502
  Receipt Date: 20120424
  Transmission Date: 20120825
  Serious: Yes (Other)
  Sender: FDA-Public Use
  Company Number: US-US-EMD SERONO, INC.-7120942

PATIENT
  Sex: Male

DRUGS (3)
  1. TYLENOL (CAPLET) [Concomitant]
     Indication: PREMEDICATION
  2. REBIF [Suspect]
     Indication: MULTIPLE SCLEROSIS
     Route: 058
     Dates: start: 20120215, end: 20120309
  3. NAPROXEN (ALEVE) [Concomitant]
     Indication: BACK DISORDER

REACTIONS (2)
  - FATIGUE [None]
  - PNEUMONIA [None]
